FAERS Safety Report 16468799 (Version 2)
Quarter: 2020Q1

REPORT INFORMATION
  Report Type: Report from Study
  Country: US (occurrence: US)
  Receive Date: 20190624
  Receipt Date: 20200224
  Transmission Date: 20200409
  Serious: No
  Sender: FDA-Public Use
  Company Number: PHEH2019US026301

PATIENT
  Sex: Female

DRUGS (1)
  1. COSENTYX [Suspect]
     Active Substance: SECUKINUMAB
     Indication: PSORIASIS
     Dosage: (ONCE A WEEK FOR 5 WEEKS, THEN ONCE)
     Route: 058
     Dates: start: 20190609

REACTIONS (1)
  - Wrong technique in product usage process [Unknown]
